FAERS Safety Report 8837718 (Version 1)
Quarter: 2012Q4

REPORT INFORMATION
  Report Type: 
  Country: ES (occurrence: ES)
  Receive Date: 20121012
  Receipt Date: 20121012
  Transmission Date: 20130627
  Serious: Yes (Other)
  Sender: FDA-Public Use
  Company Number: ES-ROCHE-1143243

PATIENT
  Age: 37 Year
  Sex: Male

DRUGS (2)
  1. BEVACIZUMAB [Suspect]
     Indication: HAEMANGIOPERICYTOMA OF MENINGES
     Dosage: days 8 and 22, repeated at 28-day intervals
     Route: 042
  2. TEMOZOLOMIDE [Concomitant]
     Indication: HAEMANGIOPERICYTOMA OF MENINGES
     Dosage: days 1-7 and days 15-21
     Route: 048

REACTIONS (1)
  - Dermatitis acneiform [Recovering/Resolving]
